FAERS Safety Report 4918933-6 (Version None)
Quarter: 2006Q1

REPORT INFORMATION
  Report Type: 
  Country: None (occurrence: None)
  Receive Date: 20060216
  Receipt Date: 20060207
  Transmission Date: 20060701
  Serious: Yes (Other)
  Sender: FDA-Public Use
  Company Number: 2006-01-1136

PATIENT
  Age: 50 Year
  Sex: Female
  Weight: 123.3784 kg

DRUGS (5)
  1. PEG-INTRON [Suspect]
     Indication: HEPATITIS C
     Dosage: 150 MCG QK SUBCUTANEOUS
     Route: 058
     Dates: start: 20050921
  2. RIABASPHERE (RIBAVIRIN) CAPSULES [Suspect]
     Indication: HEPATITIS C
     Dosage: 800 MG QD ORAL
     Route: 048
     Dates: start: 20051021
  3. BACLOFEN [Concomitant]
  4. NORCO (HYDROCODONE BITATRATE) [Concomitant]
  5. ZANTAC [Concomitant]

REACTIONS (3)
  - ADIPOSIS DOLOROSA [None]
  - NAUSEA [None]
  - VOMITING [None]
